FAERS Safety Report 5733354-4 (Version None)
Quarter: 2008Q2

REPORT INFORMATION
  Report Type: 
  Country: None (occurrence: None)
  Receive Date: 20080509
  Receipt Date: 20080507
  Transmission Date: 20081010
  Serious: Yes (Other)
  Sender: FDA-Public Use
  Company Number: US-BAYER-200815759NA

PATIENT
  Age: 13 Year
  Sex: Female
  Weight: 46 kg

DRUGS (1)
  1. YAZ [Suspect]
     Indication: VAGINAL HAEMORRHAGE
     Route: 048
     Dates: start: 20080203

REACTIONS (6)
  - CHEST PAIN [None]
  - EPISTAXIS [None]
  - OEDEMA PERIPHERAL [None]
  - PELVIC PAIN [None]
  - POLYMENORRHOEA [None]
  - VON WILLEBRAND'S DISEASE [None]
